FAERS Safety Report 9961291 (Version 1)
Quarter: 2014Q1

REPORT INFORMATION
  Report Type: Spontaneous
  Country: US (occurrence: US)
  Receive Date: 20140305
  Receipt Date: 20140305
  Transmission Date: 20141002
  Serious: Yes (Hospitalization, Other)
  Sender: FDA-Public Use
  Company Number: PHHY2014US024081

PATIENT
  Age: 29 Year
  Sex: Female

DRUGS (6)
  1. GLEEVEC [Suspect]
     Indication: CHRONIC MYELOID LEUKAEMIA
  2. MORPHINE [Concomitant]
     Dosage: 15 MG, BID
     Route: 048
     Dates: end: 201201
  3. MORPHINE [Concomitant]
     Dosage: 30 MG, DAILY
     Route: 048
  4. OXYCODONE HYDROCHLORIDE [Concomitant]
     Dosage: 5 MG, Q4H
     Route: 048
  5. OXYCODONE HYDROCHLORIDE [Concomitant]
     Dosage: 10 MG, Q4H
  6. HYDROXYUREA [Concomitant]

REACTIONS (6)
  - Pain [Unknown]
  - Thrombocytopenia [Recovered/Resolved]
  - Nausea [Unknown]
  - Night sweats [Unknown]
  - Skin hypopigmentation [Unknown]
  - Therapeutic response unexpected [Unknown]
